FAERS Safety Report 5490542-2 (Version None)
Quarter: 2007Q4

REPORT INFORMATION
  Report Type: 
  Country: None (occurrence: None)
  Receive Date: 20071019
  Receipt Date: 20071017
  Transmission Date: 20080405
  Serious: Yes (Hospitalization)
  Sender: FDA-Public Use
  Company Number: US-BRISTOL-MYERS SQUIBB COMPANY-13923693

PATIENT
  Age: 60 Year
  Sex: Female

DRUGS (13)
  1. PRAVASTATIN SODIUM [Suspect]
     Indication: HYPERLIPIDAEMIA
     Route: 048
     Dates: start: 20070705, end: 20070911
  2. EFFEXOR XR [Concomitant]
  3. AMBIEN CR [Concomitant]
  4. FLONASE [Concomitant]
  5. TOPROL-XL [Concomitant]
  6. KLONOPIN [Concomitant]
  7. NEXIUM [Concomitant]
  8. BONIVA [Concomitant]
  9. TOPAMAX [Concomitant]
  10. ASCORBIC ACID [Concomitant]
  11. VITAMIN E [Concomitant]
  12. CALCIUM [Concomitant]
  13. LORA TAB [Concomitant]

REACTIONS (4)
  - FATIGUE [None]
  - HEADACHE [None]
  - SYNCOPE [None]
  - VERTIGO [None]
